FAERS Safety Report 7537578-5 (Version None)
Quarter: 2011Q2

REPORT INFORMATION
  Report Type: 
  Country: None (occurrence: None)
  Receive Date: 20110609
  Receipt Date: 20070508
  Transmission Date: 20111010
  Serious: Yes (Other)
  Sender: FDA-Public Use
  Company Number: PHNU2007SI01766

PATIENT
  Sex: Male
  Weight: 94 kg

DRUGS (3)
  1. ASPIRIN [Concomitant]
     Dosage: 300 MG PER DAY
  2. RANITAL [Concomitant]
     Dosage: 150 MG PER DAY
  3. DIOVAN [Suspect]
     Indication: HYPERTENSION
     Dosage: 80 MG PER DAY
     Route: 048
     Dates: start: 20060915

REACTIONS (1)
  - GASTROENTERITIS [None]
